FAERS Safety Report 7026887-4 (Version None)
Quarter: 2010Q4

REPORT INFORMATION
  Report Type: 
  Country: None (occurrence: None)
  Receive Date: 20101004
  Receipt Date: 20100928
  Transmission Date: 20110411
  Serious: Yes (Disabling)
  Sender: FDA-Public Use
  Company Number: A0876104A

PATIENT
  Age: 73 Year
  Sex: Male
  Weight: 77.3 kg

DRUGS (5)
  1. SEASONAL INFLUENZA VACCINE [Suspect]
     Indication: PROPHYLAXIS
     Route: 065
  2. LOVAZA [Suspect]
     Indication: ANTIOXIDANT THERAPY
     Dosage: 1G TWICE PER DAY
     Route: 048
     Dates: start: 20090101, end: 20100813
  3. CRESTOR [Concomitant]
  4. COREG [Concomitant]
  5. LOTREL [Concomitant]

REACTIONS (6)
  - ABDOMINAL DISCOMFORT [None]
  - AGEUSIA [None]
  - ANOSMIA [None]
  - INFLUENZA [None]
  - PAROSMIA [None]
  - VACCINATION FAILURE [None]
